FAERS Safety Report 19489136 (Version 1)
Quarter: 2021Q3

REPORT INFORMATION
  Report Type: Spontaneous
  Country: US (occurrence: US)
  Receive Date: 20210703
  Receipt Date: 20210703
  Transmission Date: 20211014
  Serious: No
  Sender: FDA-Public Use
  Company Number: US-AUROBINDO-AUR-APL-2020-054009

PATIENT
  Sex: Female

DRUGS (1)
  1. GLIPIZIDE 5 MG [Suspect]
     Active Substance: GLIPIZIDE
     Indication: BLOOD GLUCOSE ABNORMAL
     Dosage: 5 MILLIGRAM
     Route: 065

REACTIONS (1)
  - Drug ineffective [Unknown]
